FAERS Safety Report 8604665-X (Version None)
Quarter: 2012Q3

REPORT INFORMATION
  Report Type: 
  Country: None (occurrence: None)
  Receive Date: 20120807
  Receipt Date: 20120726
  Transmission Date: 20120928
  Serious: Yes (Other)
  Sender: FDA-Public Use
  Company Number: 2012P1051836

PATIENT
  Age: 65 Year
  Sex: Female
  Weight: 70.3075 kg

DRUGS (5)
  1. SYNTHROID [Concomitant]
  2. ZYRTEC [Concomitant]
  3. METHYLPREDNISOLONE 4MG TAB [Suspect]
     Indication: DERMATITIS CONTACT
     Dosage: 12 MG;BID;PO, 20 MG;QD;PO, 16 MG;QD;PO
     Route: 048
     Dates: start: 20120627, end: 20120627
  4. METHYLPREDNISOLONE 4MG TAB [Suspect]
     Indication: DERMATITIS CONTACT
     Dosage: 12 MG;BID;PO, 20 MG;QD;PO, 16 MG;QD;PO
     Route: 048
     Dates: start: 20120626, end: 20120626
  5. METHYLPREDNISOLONE 4MG TAB [Suspect]
     Indication: DERMATITIS CONTACT
     Dosage: 12 MG;BID;PO, 20 MG;QD;PO, 16 MG;QD;PO
     Route: 048
     Dates: start: 20120625, end: 20120625

REACTIONS (8)
  - EYE SWELLING [None]
  - MUSCULOSKELETAL STIFFNESS [None]
  - MUSCLE TIGHTNESS [None]
  - SWELLING [None]
  - URTICARIA [None]
  - TENDERNESS [None]
  - ARTHROPOD BITE [None]
  - PAIN [None]
